FAERS Safety Report 21180113 (Version 1)
Quarter: 2022Q3

REPORT INFORMATION
  Report Type: Report from Study
  Country: MX (occurrence: MX)
  Receive Date: 20220805
  Receipt Date: 20220805
  Transmission Date: 20221026
  Serious: Yes (Other)
  Sender: FDA-Public Use
  Company Number: MX-ABBOTT-2022A-1350959

PATIENT
  Sex: Female

DRUGS (2)
  1. CREON [Suspect]
     Active Substance: PANCRELIPASE AMYLASE\PANCRELIPASE LIPASE\PANCRELIPASE PROTEASE
     Indication: Pancreatitis chronic
     Dosage: 150 MG ONE CAPSULE IN THE MORNING AND ONE AT NIGHT, SINCE 2017 OR 2018
     Route: 048
  2. CREON [Suspect]
     Active Substance: PANCRELIPASE AMYLASE\PANCRELIPASE LIPASE\PANCRELIPASE PROTEASE
     Dosage: SOMETIMES TAKES TWO CAPS WHEN SHE EATS TOO MUCH FOOD OR WHEN SHE FEELS VERY HEAVY
     Route: 048

REACTIONS (3)
  - Systemic lupus erythematosus [Unknown]
  - Intentional dose omission [Unknown]
  - Intentional product misuse [Unknown]
